FAERS Safety Report 5228837-X (Version None)
Quarter: 2007Q1

REPORT INFORMATION
  Report Type: 
  Country: None (occurrence: None)
  Receive Date: 20061201
  Receipt Date: 20061003
  Transmission Date: 20070707
  Serious: No
  Sender: FDA-Public Use
  Company Number: US200610000653

PATIENT
  Age: 61 Year
  Sex: Female

DRUGS (1)
  1. CYMBALTA [Suspect]
     Indication: ANXIETY
     Dosage: 30 MG, DAILY (1/D), ORAL
     Route: 048
     Dates: start: 20060929, end: 20061003

REACTIONS (3)
  - NAUSEA [None]
  - OESOPHAGEAL SPASM [None]
  - STOMACH DISCOMFORT [None]
